FAERS Safety Report 8507187-X (Version None)
Quarter: 2012Q3

REPORT INFORMATION
  Report Type: 
  Country: None (occurrence: None)
  Receive Date: 20120712
  Receipt Date: 20120705
  Transmission Date: 20120928
  Serious: Yes (Other)
  Sender: FDA-Public Use
  Company Number: CHPA2012US014256

PATIENT
  Age: 64 Year
  Sex: Female

DRUGS (8)
  1. CALCIUM [Concomitant]
  2. LIOTHYRONINE SODIUM [Concomitant]
     Indication: HYPOTHYROIDISM
     Dosage: 50 MICRO GRAMS, UNK
  3. VITAMIN E [Concomitant]
  4. THORAZINE [Suspect]
     Indication: BIPOLAR DISORDER
     Dosage: 5 MG, ONCE/SINGLE
     Dates: start: 20120704
  5. VITAMINS NOS [Concomitant]
     Indication: ARTHROPATHY
  6. VOLTAREN [Suspect]
     Indication: OSTEOARTHRITIS
     Dosage: 4 G, UP TO 4 TIMES DAILY OCCASIONALLY
     Route: 061
     Dates: start: 20120501
  7. ZINC SULFATE [Concomitant]
  8. VOLTAREN [Suspect]
     Dosage: ABOUT AN INCH, UNK
     Route: 061

REACTIONS (8)
  - EXPIRED DRUG ADMINISTERED [None]
  - SLEEP DISORDER [None]
  - ANXIETY [None]
  - CONCOMITANT DISEASE AGGRAVATED [None]
  - WRONG TECHNIQUE IN DRUG USAGE PROCESS [None]
  - UNDERDOSE [None]
  - BIPOLAR DISORDER [None]
  - HALLUCINATION, VISUAL [None]
